FAERS Safety Report 10606910 (Version 1)
Quarter: 2014Q4

REPORT INFORMATION
  Report Type: Spontaneous
  Country: US (occurrence: None)
  Receive Date: 20141124
  Receipt Date: 20141124
  Transmission Date: 20150529
  Serious: Yes (Hospitalization)
  Sender: FDA-Public Use
  Company Number: None

PATIENT
  Age: 67 Year
  Sex: Female
  Weight: 59.2 kg

DRUGS (15)
  1. OXYBUTYNIN [Concomitant]
     Active Substance: OXYBUTYNIN
  2. MVI [Concomitant]
     Active Substance: VITAMINS
  3. METOPROLOL [Concomitant]
     Active Substance: METOPROLOL
  4. DEXTROAMPHETAMINE [Concomitant]
     Active Substance: DEXTROAMPHETAMINE
  5. HCTZ [Concomitant]
     Active Substance: HYDROCHLOROTHIAZIDE
  6. VITD [Concomitant]
  7. PAXIL [Concomitant]
     Active Substance: PAROXETINE HYDROCHLORIDE
  8. CALCIPOTRIENE. [Concomitant]
     Active Substance: CALCIPOTRIENE
  9. ASA [Concomitant]
     Active Substance: ASPIRIN
  10. COUMADIN [Concomitant]
     Active Substance: WARFARIN SODIUM
  11. IRON [Concomitant]
     Active Substance: IRON
  12. MIRAPEX [Concomitant]
     Active Substance: PRAMIPEXOLE DIHYDROCHLORIDE
  13. NORCO [Suspect]
     Active Substance: ACETAMINOPHEN\HYDROCODONE BITARTRATE
     Indication: KNEE ARTHROPLASTY
     Dosage: 7.5/325 MG Q4HR PRN PO
     Route: 048
  14. BETAMETHASONE [Concomitant]
     Active Substance: BETAMETHASONE
  15. BACLOFEN. [Concomitant]
     Active Substance: BACLOFEN

REACTIONS (4)
  - Confusional state [None]
  - Encephalopathy [None]
  - Somnolence [None]
  - Pneumonia [None]

NARRATIVE: CASE EVENT DATE: 20140603
